FAERS Safety Report 5008314-1 (Version None)
Quarter: 2006Q2

REPORT INFORMATION
  Report Type: 
  Country: None (occurrence: None)
  Receive Date: 20060523
  Receipt Date: 20060517
  Transmission Date: 20061013
  Serious: Yes (Hospitalization)
  Sender: FDA-Public Use
  Company Number: CH-JNJFOC-20060203300

PATIENT
  Age: 5 Decade
  Sex: Female

DRUGS (9)
  1. RISPERDAL [Suspect]
     Route: 048
  2. RISPERDAL [Suspect]
     Route: 048
  3. RISPERDAL [Suspect]
     Indication: DRUG USE FOR UNKNOWN INDICATION
     Route: 048
  4. SERESTA [Suspect]
     Route: 048
  5. SERESTA [Suspect]
     Dosage: 50-10 MG
     Route: 048
  6. SERESTA [Suspect]
     Route: 048
  7. SERESTA [Suspect]
     Indication: DRUG USE FOR UNKNOWN INDICATION
     Route: 048
  8. SEROQUEL [Suspect]
     Route: 048
  9. SEROQUEL [Suspect]
     Indication: DRUG USE FOR UNKNOWN INDICATION
     Route: 048

REACTIONS (5)
  - DYSKINESIA [None]
  - DYSPNOEA [None]
  - HALLUCINATIONS, MIXED [None]
  - HYPERVENTILATION [None]
  - OROPHARYNGEAL SPASM [None]
